FAERS Safety Report 19393112 (Version 2)
Quarter: 2021Q2

REPORT INFORMATION
  Report Type: Spontaneous
  Country: US (occurrence: US)
  Receive Date: 20210609
  Receipt Date: 20210614
  Transmission Date: 20210717
  Serious: Yes (Disabling)
  Sender: FDA-Public Use
  Company Number: US-AMGEN-USASP2021086403

PATIENT
  Age: 71 Year
  Sex: Female

DRUGS (2)
  1. FLUOCINONIDE. [Concomitant]
     Active Substance: FLUOCINONIDE
     Indication: PSORIASIS
     Dosage: UNK UNK, TID
  2. ENBREL [Suspect]
     Active Substance: ETANERCEPT
     Indication: PSORIASIS
     Dosage: 50 MILLIGRAM, 2 TIMES/WK
     Route: 065

REACTIONS (2)
  - Product storage error [Unknown]
  - Limb reduction defect [Unknown]

NARRATIVE: CASE EVENT DATE: 20210529
